FAERS Safety Report 6298845-9 (Version None)
Quarter: 2009Q4

REPORT INFORMATION
  Report Type: 
  Country: None (occurrence: None)
  Receive Date: 20090805
  Receipt Date: 20090805
  Transmission Date: 20100525
  Serious: No
  Sender: FDA-Public Use
  Company Number: None

PATIENT
  Age: 49 Year
  Sex: Male

DRUGS (8)
  1. ISENTRESS [Suspect]
     Dates: start: 20080128, end: 20080212
  2. TRUVADA [Suspect]
     Dates: start: 20080128, end: 20080212
  3. MEPRON [Concomitant]
  4. BACTRIM [Concomitant]
  5. BENADRYL [Concomitant]
  6. NEURONTIN [Concomitant]
  7. TRUVADA [Concomitant]
  8. ISENTRESS [Concomitant]

REACTIONS (5)
  - ALANINE AMINOTRANSFERASE INCREASED [None]
  - ASPARTATE AMINOTRANSFERASE INCREASED [None]
  - IMMUNE RECONSTITUTION SYNDROME [None]
  - JAUNDICE [None]
  - LIVER INJURY [None]
